FAERS Safety Report 7918996-X (Version None)
Quarter: 2011Q4

REPORT INFORMATION
  Report Type: 
  Country: None (occurrence: None)
  Receive Date: 20111116
  Receipt Date: 20111114
  Transmission Date: 20120403
  Serious: Yes (Life-Threatening, Hospitalization)
  Sender: FDA-Public Use
  Company Number: AU-B.I. PHARMACEUTICALS,INC./RIDGEFIELD-2011-AU-02061AU

PATIENT
  Sex: Male
  Weight: 89 kg

DRUGS (3)
  1. PRADAXA [Suspect]
     Indication: ATRIAL FIBRILLATION
     Dosage: 220 MG
     Dates: start: 20110902, end: 20111006
  2. IRBESARTAN [Concomitant]
     Dosage: 150 MG
  3. RISEDRONATE SODIUM [Concomitant]
     Dosage: 5 MG

REACTIONS (6)
  - DEHYDRATION [None]
  - RENAL FAILURE ACUTE [None]
  - HAEMATURIA [None]
  - HAEMORRHAGE [None]
  - DIARRHOEA [None]
  - MALAISE [None]
